FAERS Safety Report 25934383 (Version 1)
Quarter: 2025Q4

REPORT INFORMATION
  Report Type: Spontaneous
  Country: US (occurrence: US)
  Receive Date: 20251017
  Receipt Date: 20251017
  Transmission Date: 20260118
  Serious: Yes (Other)
  Sender: AMGEN
  Company Number: US-AMGEN-USASP2025204456

PATIENT

DRUGS (5)
  1. BEVACIZUMAB [Suspect]
     Active Substance: BEVACIZUMAB
     Indication: Hepatocellular carcinoma
     Dosage: UNK
     Route: 065
  2. ATEZOLIZUMAB [Concomitant]
     Active Substance: ATEZOLIZUMAB
     Indication: Hepatocellular carcinoma
  3. CABOZANTINIB [Concomitant]
     Active Substance: CABOZANTINIB
     Indication: Hepatocellular carcinoma
     Dosage: 20 MILLIGRAM
     Route: 065
  4. CABOZANTINIB [Concomitant]
     Active Substance: CABOZANTINIB
     Dosage: 40 MILLIGRAM
     Route: 065
  5. CABOZANTINIB [Concomitant]
     Active Substance: CABOZANTINIB
     Dosage: 60 MILLIGRAM
     Route: 065

REACTIONS (31)
  - Ascites [Unknown]
  - Thrombocytopenia [Unknown]
  - Oedema peripheral [Unknown]
  - Rash [Unknown]
  - Dizziness [Unknown]
  - Blood bilirubin increased [Unknown]
  - Aspartate aminotransferase increased [Unknown]
  - Alanine aminotransferase increased [Unknown]
  - Hypoalbuminaemia [Unknown]
  - Insomnia [Unknown]
  - Off label use [Unknown]
  - Anaemia [Unknown]
  - Haemorrhage [Unknown]
  - Palmar-plantar erythrodysaesthesia syndrome [Unknown]
  - Diarrhoea [Unknown]
  - Hypertension [Unknown]
  - Abdominal pain [Unknown]
  - Fatigue [Unknown]
  - Nausea [Unknown]
  - Vomiting [Unknown]
  - Dyspnoea [Unknown]
  - Asthenia [Unknown]
  - Constipation [Unknown]
  - Cough [Unknown]
  - Decreased appetite [Unknown]
  - Back pain [Unknown]
  - Mucosal inflammation [Unknown]
  - Headache [Unknown]
  - Stomatitis [Unknown]
  - Dysphonia [Unknown]
  - Weight decreased [Unknown]
